FAERS Safety Report 21671191 (Version 1)
Quarter: 2022Q4

REPORT INFORMATION
  Report Type: Spontaneous
  Country: IT (occurrence: None)
  Receive Date: 20221202
  Receipt Date: 20221202
  Transmission Date: 20230113
  Serious: Yes (Hospitalization)
  Sender: FDA-Public Use
  Company Number: None

PATIENT
  Age: 42 Year
  Sex: Male
  Weight: 72 kg

DRUGS (4)
  1. OCREVUS [Suspect]
     Active Substance: OCRELIZUMAB
     Indication: Relapsing-remitting multiple sclerosis
     Dosage: 600 MG (REPEATED EVERY 6 MONTHS) INFUSED: 300 MG IV ON 10/22/22 AND 300 MG IV ON 11/03/2022
     Route: 042
     Dates: start: 20221022, end: 20221103
  2. ROSUMIBE (ITALY) [Concomitant]
  3. FOLINA [Concomitant]
  4. CIANOCOBALAMINA [Concomitant]

REACTIONS (4)
  - Acute pulmonary oedema [Unknown]
  - Hypotension [Unknown]
  - Cardiac failure acute [Unknown]
  - Dyspnoea [Recovered/Resolved]

NARRATIVE: CASE EVENT DATE: 20221105
